FAERS Safety Report 20496883 (Version 3)
Quarter: 2022Q1

REPORT INFORMATION
  Report Type: Report from Study
  Country: US (occurrence: None)
  Receive Date: 20220221
  Receipt Date: 20220304
  Transmission Date: 20220423
  Serious: Yes (Life-Threatening, Hospitalization)
  Sender: FDA-Public Use
  Company Number: US-ROCHE-3014369

PATIENT
  Age: 55 Year
  Sex: Male

DRUGS (46)
  1. TENECTEPLASE [Suspect]
     Active Substance: TENECTEPLASE
     Indication: Thrombolysis
     Dosage: ON 26/JAN/2022, HE RECEIVED MOST RECENT DOSE OF DOUBLE BLINDED TENECTEPLASE PRIOR TO THE EVENT AT 7:
     Route: 042
     Dates: start: 20220126
  2. ASPIRIN [Concomitant]
     Active Substance: ASPIRIN
     Route: 048
     Dates: start: 20220127
  3. ATORVASTATIN [Concomitant]
     Active Substance: ATORVASTATIN
     Indication: Blood cholesterol increased
     Route: 048
     Dates: start: 20220126, end: 20220219
  4. BUDESONIDE [Concomitant]
     Active Substance: BUDESONIDE
     Route: 055
     Dates: start: 20220130
  5. CEFAZOLIN [Concomitant]
     Active Substance: CEFAZOLIN
     Indication: Prophylaxis
     Route: 042
     Dates: start: 20220130, end: 20220131
  6. CHLORHEXIDINE [Concomitant]
     Active Substance: CHLORHEXIDINE
     Route: 048
     Dates: start: 20220129, end: 20220209
  7. CIPRO [Concomitant]
     Active Substance: CIPROFLOXACIN HYDROCHLORIDE
     Route: 047
     Dates: start: 20220126, end: 20220202
  8. DIAZEPAM [Concomitant]
     Active Substance: DIAZEPAM
     Indication: Anxiety
     Route: 048
     Dates: start: 20220130, end: 20220202
  9. DOCUSATE [Concomitant]
     Active Substance: DOCUSATE
     Route: 048
     Dates: start: 20220207
  10. ALCOHOL [Concomitant]
     Active Substance: ALCOHOL
     Dosage: 1 OTHER
     Route: 045
     Dates: start: 20220127
  11. FAMOTIDINE [Concomitant]
     Active Substance: FAMOTIDINE
     Route: 048
     Dates: start: 20220208, end: 20220215
  12. FENTANYL [Concomitant]
     Active Substance: FENTANYL
     Route: 042
     Dates: start: 20220128, end: 20220207
  13. HEPARIN [Concomitant]
     Active Substance: HEPARIN SODIUM
     Indication: Anticoagulant therapy
     Dosage: 5000 U
     Route: 058
     Dates: start: 20220202
  14. HYDROMORPHONE [Concomitant]
     Active Substance: HYDROMORPHONE
     Route: 042
     Dates: start: 20220130, end: 20220202
  15. INSULIN NOS [Concomitant]
     Active Substance: INSULIN NOS
     Indication: Blood glucose decreased
     Dosage: 4 U
     Route: 058
     Dates: start: 20220128
  16. IOPAMIDOL [Concomitant]
     Active Substance: IOPAMIDOL
     Route: 042
     Dates: start: 20220126, end: 20220129
  17. KEPPRA [Concomitant]
     Active Substance: LEVETIRACETAM
     Route: 042
     Dates: start: 20220128, end: 20220209
  18. LASIX [Concomitant]
     Active Substance: FUROSEMIDE
     Route: 042
     Dates: start: 20220202, end: 20220203
  19. LABETALOL [Concomitant]
     Active Substance: LABETALOL\LABETALOL HYDROCHLORIDE
     Route: 042
     Dates: start: 20220203, end: 20220205
  20. LORAZEPAM [Concomitant]
     Active Substance: LORAZEPAM
     Indication: Anxiety
     Route: 042
     Dates: start: 20220204, end: 20220205
  21. MANNITOL [Concomitant]
     Active Substance: MANNITOL
     Route: 042
     Dates: start: 20220127
  22. MEROPENEM [Concomitant]
     Active Substance: MEROPENEM
     Route: 042
     Dates: start: 20220129, end: 20220205
  23. METOPROLOL [Concomitant]
     Active Substance: METOPROLOL
     Route: 048
     Dates: start: 20220208
  24. MIDAZOLAM [Concomitant]
     Active Substance: MIDAZOLAM
     Route: 042
     Dates: start: 20220128, end: 20220128
  25. MIDAZOLAM [Concomitant]
     Active Substance: MIDAZOLAM
     Route: 042
     Dates: start: 20220207, end: 20220207
  26. MORPHINE [Concomitant]
     Active Substance: MORPHINE
     Route: 042
     Dates: start: 20220208, end: 20220208
  27. NICARDIPINE [Concomitant]
     Active Substance: NICARDIPINE
     Route: 042
     Dates: start: 20220126, end: 20220128
  28. NOREPINEPHRINE [Concomitant]
     Active Substance: NOREPINEPHRINE
     Route: 042
     Dates: start: 20220127, end: 20220207
  29. PROTONIX [Concomitant]
     Active Substance: PANTOPRAZOLE SODIUM
     Route: 042
     Dates: start: 20220128
  30. PHENYLEPHRINE [Concomitant]
     Active Substance: PHENYLEPHRINE HYDROCHLORIDE
     Dosage: 100UG
     Route: 042
     Dates: start: 20220130, end: 20220130
  31. MIRALAX [Concomitant]
     Active Substance: POLYETHYLENE GLYCOL 3350
     Route: 048
     Dates: start: 20220131
  32. POTASSIUM PHOSPHATE [Concomitant]
     Active Substance: POTASSIUM PHOSPHATE
     Route: 042
     Dates: start: 20220130, end: 20220130
  33. PROPOFOL [Concomitant]
     Active Substance: PROPOFOL
     Route: 042
     Dates: start: 20220130, end: 20220130
  34. ROCURONIUM [Concomitant]
     Active Substance: ROCURONIUM BROMIDE
     Indication: Muscle relaxant therapy
     Route: 042
     Dates: start: 20220130, end: 20220130
  35. ROCURONIUM [Concomitant]
     Active Substance: ROCURONIUM BROMIDE
     Route: 042
     Dates: start: 20220207, end: 20220207
  36. ROCURONIUM [Concomitant]
     Active Substance: ROCURONIUM BROMIDE
     Route: 042
     Dates: start: 20220127, end: 20220127
  37. THIAMINE [Concomitant]
     Active Substance: THIAMINE
     Route: 048
     Dates: start: 20220128
  38. TYLENOL [Concomitant]
     Active Substance: ACETAMINOPHEN
     Route: 048
     Dates: start: 20220128
  39. DEMEROL [Concomitant]
     Active Substance: MEPERIDINE HYDROCHLORIDE
     Route: 048
     Dates: start: 20220128
  40. POTASSIUM CHLORIDE [Concomitant]
     Active Substance: POTASSIUM CHLORIDE
     Dosage: 10 OTHER
     Route: 042
  41. DEXMEDETOMIDINE [Concomitant]
     Active Substance: DEXMEDETOMIDINE
     Dosage: 400 UG
     Route: 042
     Dates: start: 20220126, end: 20220208
  42. ETOMIDATE [Concomitant]
     Active Substance: ETOMIDATE
     Route: 042
     Dates: start: 20220127, end: 20220127
  43. ATROVENT [Concomitant]
     Active Substance: IPRATROPIUM BROMIDE
     Route: 055
     Dates: start: 20220128
  44. METHYLPREDNISOLONE [Concomitant]
     Active Substance: METHYLPREDNISOLONE
     Route: 042
     Dates: start: 20220130, end: 20220131
  45. ACETYLCYSTEINE [Concomitant]
     Active Substance: ACETYLCYSTEINE
     Route: 055
     Dates: start: 20220214
  46. BALSAM PERU + CASTOR OIL [Concomitant]
     Dosage: 1 OTHER
     Route: 061
     Dates: start: 20220215

REACTIONS (6)
  - Pneumonia [Recovering/Resolving]
  - Respiratory failure [Recovering/Resolving]
  - Pneumonia [Recovering/Resolving]
  - Sepsis [Recovering/Resolving]
  - Brain oedema [Recovering/Resolving]
  - Renal impairment [Recovering/Resolving]

NARRATIVE: CASE EVENT DATE: 20220127
